FAERS Safety Report 4942174-X (Version None)
Quarter: 2006Q1

REPORT INFORMATION
  Report Type: 
  Country: None (occurrence: None)
  Receive Date: 20060313
  Receipt Date: 20050818
  Transmission Date: 20060701
  Serious: No
  Sender: FDA-Public Use
  Company Number: US-GLAXOSMITHKLINE-A0570806A

PATIENT
  Age: 21 Year
  Sex: Female

DRUGS (1)
  1. EQUATE NICOTINE GUM 2MG, MINT [Suspect]
     Dates: start: 20050816

REACTIONS (5)
  - ABDOMINAL PAIN UPPER [None]
  - DYSPHAGIA [None]
  - FEELING ABNORMAL [None]
  - PHARYNGOLARYNGEAL PAIN [None]
  - SLEEP DISORDER [None]
